FAERS Safety Report 20486682 (Version 1)
Quarter: 2022Q1

REPORT INFORMATION
  Report Type: Other
  Country: TW (occurrence: None)
  Receive Date: 20220217
  Receipt Date: 20220217
  Transmission Date: 20220423
  Serious: Yes (Death)
  Sender: FDA-Public Use
  Company Number: TW-ROCHE-3027846

PATIENT
  Age: 60 Year
  Sex: Male

DRUGS (8)
  1. RITUXIMAB [Suspect]
     Active Substance: RITUXIMAB
     Indication: Myositis
     Route: 065
  2. RITUXIMAB [Suspect]
     Active Substance: RITUXIMAB
     Indication: Interstitial lung disease
  3. MYCOPHENOLIC ACID [Suspect]
     Active Substance: MYCOPHENOLIC ACID
     Indication: Myositis
     Route: 065
  4. MYCOPHENOLIC ACID [Suspect]
     Active Substance: MYCOPHENOLIC ACID
     Indication: Interstitial lung disease
  5. TACROLIMUS [Suspect]
     Active Substance: TACROLIMUS
     Indication: Myositis
     Route: 065
  6. TACROLIMUS [Suspect]
     Active Substance: TACROLIMUS
     Indication: Interstitial lung disease
  7. CYCLOSPORINE [Suspect]
     Active Substance: CYCLOSPORINE
     Indication: Myositis
     Route: 065
  8. CYCLOSPORINE [Suspect]
     Active Substance: CYCLOSPORINE
     Indication: Interstitial lung disease

REACTIONS (1)
  - Candida infection [Fatal]
